FAERS Safety Report 25112784 (Version 1)
Quarter: 2025Q1

REPORT INFORMATION
  Report Type: Spontaneous
  Country: US (occurrence: None)
  Receive Date: 20250321
  Receipt Date: 20250321
  Transmission Date: 20250409
  Serious: No
  Sender: FDA-CTU
  Company Number: None

PATIENT
  Age: 21 Year
  Weight: 52.16 kg

DRUGS (5)
  1. ARIPIPRAZOLE [Suspect]
     Active Substance: ARIPIPRAZOLE
     Indication: Cyclothymic disorder
  2. Amphethamine mix XR [Concomitant]
  3. METHYLPHENIDATE [Concomitant]
     Active Substance: METHYLPHENIDATE
  4. ESCITALOPRAM [Concomitant]
     Active Substance: ESCITALOPRAM OXALATE
  5. Prescription prenatal multivitamin [Concomitant]

REACTIONS (2)
  - Premature labour [None]
  - Caesarean section [None]

NARRATIVE: CASE EVENT DATE: 20220712
